FAERS Safety Report 24097296 (Version 1)
Quarter: 2024Q3

REPORT INFORMATION
  Report Type: Spontaneous
  Country: US (occurrence: US)
  Receive Date: 20240716
  Receipt Date: 20240716
  Transmission Date: 20241017
  Serious: No
  Sender: PFIZER
  Company Number: US-PFIZER INC-PV202400059777

PATIENT
  Age: 62 Year
  Sex: Female

DRUGS (1)
  1. XELJANZ [Suspect]
     Active Substance: TOFACITINIB CITRATE
     Indication: Rheumatoid arthritis
     Dosage: 5 MG, 1X/DAY FOR THE FIRST WEEK THEN ONE 5MG TABLET TWICE DAILY
     Route: 048
     Dates: start: 20240503, end: 20240528

REACTIONS (2)
  - Drug ineffective [Unknown]
  - Off label use [Unknown]
